FAERS Safety Report 18052851 (Version 1)
Quarter: 2020Q3

REPORT INFORMATION
  Report Type: Spontaneous
  Country: JP (occurrence: JP)
  Receive Date: 20200721
  Receipt Date: 20200721
  Transmission Date: 20201103
  Serious: Yes (Other)
  Sender: FDA-Public Use
  Company Number: JP-BAXTER-2020BAX014663

PATIENT
  Age: 13 Year
  Sex: Male

DRUGS (1)
  1. HOLOXAN [Suspect]
     Active Substance: IFOSFAMIDE
     Indication: EWING^S SARCOMA RECURRENT
     Route: 065

REACTIONS (1)
  - Gaze palsy [Recovering/Resolving]
